FAERS Safety Report 20039059 (Version 2)
Quarter: 2021Q4

REPORT INFORMATION
  Report Type: Spontaneous
  Country: FR (occurrence: FR)
  Receive Date: 20211105
  Receipt Date: 20211109
  Transmission Date: 20220303
  Serious: Yes (Death, Hospitalization, Other)
  Sender: FDA-Public Use
  Company Number: None

PATIENT
  Age: 77 Year
  Sex: Male
  Weight: 68 kg

DRUGS (8)
  1. METHOTREXATE SODIUM [Suspect]
     Active Substance: METHOTREXATE SODIUM
     Indication: Ankylosing spondylitis
     Dosage: 5 MG, WEEKLY
     Route: 048
     Dates: start: 202009, end: 20210913
  2. SIMPONI [Suspect]
     Active Substance: GOLIMUMAB
     Indication: Ankylosing spondylitis
     Dosage: 1 DF
     Route: 058
     Dates: start: 202009, end: 20210801
  3. FOLIC ACID [Concomitant]
     Active Substance: FOLIC ACID
     Dosage: 5 MG
     Route: 065
  4. POTASSIUM CHLORIDE [Concomitant]
     Active Substance: POTASSIUM CHLORIDE
     Dosage: UNK
     Route: 065
  5. PYRIDOXINE [Concomitant]
     Active Substance: PYRIDOXINE
     Dosage: UNK
     Route: 065
  6. BISOPROLOL [Concomitant]
     Active Substance: BISOPROLOL
     Dosage: STRENGTH: 2.5 MG
     Route: 065
  7. ALFUZOSIN [Concomitant]
     Active Substance: ALFUZOSIN
     Dosage: STRENGTH: 40 MG
     Route: 065
  8. LEVOFLOXACIN [Concomitant]
     Active Substance: LEVOFLOXACIN
     Dosage: STRENGTH: 0.4 (UNIT UNKNOWN)
     Route: 065

REACTIONS (6)
  - Bone tuberculosis [Fatal]
  - Pulmonary tuberculosis [Fatal]
  - Gastrointestinal haemorrhage [Fatal]
  - Pancytopenia [Unknown]
  - Thrombocytopenia [Recovered/Resolved]
  - Off label use [Unknown]

NARRATIVE: CASE EVENT DATE: 20200901
